FAERS Safety Report 21466053 (Version 1)
Quarter: 2022Q4

REPORT INFORMATION
  Report Type: Spontaneous
  Country: US (occurrence: None)
  Receive Date: 20221014
  Receipt Date: 20221014
  Transmission Date: 20230113
  Serious: No
  Sender: FDA-Public Use
  Company Number: None

PATIENT
  Age: 71 Year
  Sex: Female
  Weight: 52.65 kg

DRUGS (8)
  1. ESTRADIOL TRANSDERMAL SYSTEM [Suspect]
     Active Substance: ESTRADIOL
     Indication: Hormone replacement therapy
     Dosage: OTHER QUANTITY : 1 PATCH(ES);?OTHER FREQUENCY : WEEKLY;?
     Route: 061
     Dates: start: 202207, end: 20220808
  2. NEXIUM [Concomitant]
     Active Substance: ESOMEPRAZOLE MAGNESIUM
  3. IRBESARTAN [Concomitant]
     Active Substance: IRBESARTAN
  4. SPIRONOLACTONE [Concomitant]
     Active Substance: SPIRONOLACTONE
  5. FIORICET [Concomitant]
     Active Substance: ACETAMINOPHEN\BUTALBITAL\CAFFEINE
  6. MEMANTINE [Concomitant]
     Active Substance: MEMANTINE
  7. CALCIUM [Concomitant]
     Active Substance: CALCIUM
  8. one a day vitamins [Concomitant]

REACTIONS (1)
  - Application site rash [None]

NARRATIVE: CASE EVENT DATE: 20220725
